FAERS Safety Report 6809314-9 (Version None)
Quarter: 2010Q2

REPORT INFORMATION
  Report Type: 
  Country: None (occurrence: None)
  Receive Date: 20100630
  Receipt Date: 20100621
  Transmission Date: 20101027
  Serious: Yes (Other)
  Sender: FDA-Public Use
  Company Number: US-TYCO HEALTHCARE/MALLINCKRODT-T201001493

PATIENT
  Age: 39 Year
  Sex: Female

DRUGS (7)
  1. FLUOXETINE [Suspect]
     Dosage: 20 MG, QD
  2. AMANTADINE HCL [Suspect]
     Indication: TREMOR
     Dosage: 2, 100 MG TWICE DAILY
  3. AMANTADINE HCL [Suspect]
     Indication: FATIGUE
     Dosage: 100 MG QD
  4. BUPROPION HCL [Concomitant]
     Dosage: 100 MG, QD
  5. COPAXONE [Concomitant]
     Dosage: 20 MG, QD
     Route: 058
  6. TOPIRAMATE [Concomitant]
     Dosage: 50 MG, BID
  7. CLONAZEPAM [Concomitant]
     Dosage: 2 MG, QD

REACTIONS (1)
  - CORNEAL OEDEMA [None]
